FAERS Safety Report 17394939 (Version 1)
Quarter: 2020Q1

REPORT INFORMATION
  Report Type: Other
  Country: DE (occurrence: DE)
  Receive Date: 20200210
  Receipt Date: 20200210
  Transmission Date: 20200409
  Serious: Yes (Hospitalization, Other)
  Sender: FDA-Public Use
  Company Number: DE-IPCA LABORATORIES LIMITED-IPC-2020-DE-000357

PATIENT

DRUGS (2)
  1. CETIRIZINE [Suspect]
     Active Substance: CETIRIZINE HYDROCHLORIDE
     Indication: HERPANGINA
     Dosage: 10 MILLIGRAM
     Route: 048
     Dates: start: 20190404
  2. ECSTASY [Interacting]
     Active Substance: MIDOMAFETAMINE
     Indication: PRODUCT USED FOR UNKNOWN INDICATION
     Dosage: UNK
     Route: 048
     Dates: start: 20190405, end: 20190405

REACTIONS (4)
  - Electrocardiogram QT prolonged [Unknown]
  - Drug interaction [Unknown]
  - Toxicity to various agents [Unknown]
  - Urine amphetamine positive [Unknown]

NARRATIVE: CASE EVENT DATE: 20190405
